FAERS Safety Report 15802813 (Version 8)
Quarter: 2020Q2

REPORT INFORMATION
  Report Type: Report from Study
  Country: CN (occurrence: CN)
  Receive Date: 20190109
  Receipt Date: 20200615
  Transmission Date: 20200713
  Serious: Yes (Hospitalization)
  Sender: FDA-Public Use
  Company Number: PHHO2019CN000545

PATIENT
  Age: 55 Year
  Sex: Female
  Weight: 63 kg

DRUGS (2)
  1. COMPARATOR EXEMESTANE [Suspect]
     Active Substance: EXEMESTANE
     Indication: BREAST CANCER METASTATIC
     Dosage: 25 MG, QD
     Route: 048
     Dates: start: 20181029
  2. EVEROLIMUS. [Suspect]
     Active Substance: EVEROLIMUS
     Indication: BREAST CANCER METASTATIC
     Dosage: 10 MG
     Route: 048
     Dates: start: 20181029, end: 20190129

REACTIONS (1)
  - Diabetic ketosis [Recovered/Resolved]

NARRATIVE: CASE EVENT DATE: 20181228
